FAERS Safety Report 10149605 (Version 1)
Quarter: 2014Q2

REPORT INFORMATION
  Report Type: Spontaneous
  Country: JP (occurrence: JP)
  Receive Date: 20140502
  Receipt Date: 20140502
  Transmission Date: 20141212
  Serious: Yes (Other)
  Sender: FDA-Public Use
  Company Number: JP-PFIZER INC-2014116858

PATIENT
  Sex: Female

DRUGS (4)
  1. LYRICA [Suspect]
     Indication: HERPES ZOSTER
     Dosage: 2 CAPSULES OF 75 MG
     Route: 048
  2. LYRICA [Suspect]
     Indication: BACK PAIN
     Dosage: 25 MG, 2X/DAY
     Route: 048
  3. LYRICA [Suspect]
     Indication: SPINAL COLUMN STENOSIS
     Dosage: 50 MG, 2X/DAY
     Route: 048
  4. LYRICA [Suspect]
     Dosage: 75 MG, 1X/DAY
     Route: 048

REACTIONS (5)
  - Paralysis [Unknown]
  - Dizziness [Unknown]
  - Hypoaesthesia [Unknown]
  - Somnolence [Unknown]
  - Oropharyngeal pain [Unknown]
